FAERS Safety Report 6648874-8 (Version None)
Quarter: 2010Q1

REPORT INFORMATION
  Report Type: 
  Country: None (occurrence: None)
  Receive Date: 20100324
  Receipt Date: 20100317
  Transmission Date: 20100710
  Serious: Yes (Death)
  Sender: FDA-Public Use
  Company Number: JP-PFIZER INC-2010019980

PATIENT
  Age: 3 Month
  Sex: Male

DRUGS (15)
  1. SILDENAFIL CITRATE [Suspect]
     Indication: PULMONARY ARTERIAL HYPERTENSION
     Dosage: .15 MG, 4X/DAY
     Route: 048
     Dates: start: 20080630, end: 20080727
  2. SILDENAFIL CITRATE [Suspect]
     Dosage: .075 MG, 4X/DAY
     Dates: end: 20080629
  3. FENTANYL [Concomitant]
     Route: 042
     Dates: end: 20080717
  4. MORPHINE HYDROCHLORIDE [Concomitant]
     Route: 042
     Dates: end: 20080725
  5. LASIX [Concomitant]
     Route: 042
     Dates: end: 20080718
  6. FAMOTIDINE [Concomitant]
     Route: 042
  7. INOVAN [Concomitant]
     Route: 042
  8. BOSMIN [Concomitant]
     Route: 042
  9. HEPARIN SODIUM [Concomitant]
     Route: 042
     Dates: end: 20080725
  10. MILRILA [Concomitant]
     Route: 042
     Dates: end: 20080712
  11. ALBUMIN HUMAN [Concomitant]
     Route: 042
     Dates: end: 20080720
  12. BUMINATE [Concomitant]
     Route: 042
     Dates: end: 20080725
  13. ATROPINE SULFATE [Concomitant]
     Route: 042
  14. THYRADIN S [Concomitant]
     Route: 048
     Dates: end: 20080721
  15. FIRSTCIN [Concomitant]
     Route: 042
     Dates: end: 20080723

REACTIONS (1)
  - MULTI-ORGAN FAILURE [None]
